FAERS Safety Report 9048926 (Version 1)
Quarter: 2013Q1

REPORT INFORMATION
  Report Type: Spontaneous
  Country: US (occurrence: None)
  Receive Date: 20130116
  Receipt Date: 20130116
  Transmission Date: 20140127
  Serious: Yes (Death)
  Sender: FDA-Public Use
  Company Number: DSA_61858_2013

PATIENT
  Age: 51 Year
  Sex: Female

DRUGS (5)
  1. DILTIAZEM HYDROCHLORIDE [Suspect]
     Indication: PRODUCT USED FOR UNKNOWN INDICATION
     Dosage: (DF)
     Route: 048
  2. BUPROPION [Suspect]
     Dosage: (DF)
     Route: 048
  3. RAMIPRIL [Suspect]
     Dosage: (DF)
     Route: 048
  4. CARVEDILOL [Suspect]
     Dosage: (DF)
     Route: 048
  5. DOFETILIDE [Suspect]
     Dosage: (DF)
     Route: 048

REACTIONS (2)
  - Completed suicide [None]
  - Toxicity to various agents [None]
